FAERS Safety Report 17822819 (Version 1)
Quarter: 2020Q2

REPORT INFORMATION
  Report Type: Spontaneous
  Country: ES (occurrence: ES)
  Receive Date: 20200526
  Receipt Date: 20200526
  Transmission Date: 20200714
  Serious: Yes (Hospitalization)
  Sender: FDA-Public Use
  Company Number: ES-TEVA-2020-ES-1239401

PATIENT
  Age: 74 Year

DRUGS (1)
  1. OLMESARTAN [Suspect]
     Active Substance: OLMESARTAN
     Route: 065

REACTIONS (3)
  - Acute kidney injury [Recovered/Resolved]
  - Sprue-like enteropathy [Recovered/Resolved]
  - Hypotension [Recovered/Resolved]
